FAERS Safety Report 6126011-6 (Version None)
Quarter: 2009Q1

REPORT INFORMATION
  Report Type: 
  Country: None (occurrence: None)
  Receive Date: 20090320
  Receipt Date: 20090311
  Transmission Date: 20090719
  Serious: Yes (Hospitalization, Other)
  Sender: FDA-Public Use
  Company Number: DE-ELI_LILLY_AND_COMPANY-DE200812004246

PATIENT
  Sex: Male
  Weight: 124 kg

DRUGS (8)
  1. BYETTA [Suspect]
     Indication: TYPE 2 DIABETES MELLITUS
     Dosage: 5 UG, 2/D
     Route: 058
     Dates: start: 20080414, end: 20080512
  2. BYETTA [Suspect]
     Dosage: 10 UG, 2/D
     Route: 058
     Dates: start: 20080513, end: 20081001
  3. METFORMIN HCL [Concomitant]
     Dosage: 100 MG, 2/D
     Route: 048
     Dates: start: 20050101
  4. TORSEMIDE [Concomitant]
     Dosage: 5 MG, 2/D
     Route: 065
  5. RAMIPRIL [Concomitant]
     Dosage: UNK, DAILY (1/D)
     Route: 048
  6. SIMVAHEXAL [Concomitant]
     Dosage: 40 MG, DAILY (1/D)
     Route: 048
  7. LEVOTHYROXINE SODIUM [Concomitant]
     Dosage: 150 MG, DAILY (1/D)
     Route: 048
  8. PANTOZOL [Concomitant]
     Dosage: 40 MG, DAILY (1/D)
     Route: 048

REACTIONS (5)
  - ELECTROCARDIOGRAM POOR R-WAVE PROGRESSION [None]
  - HEADACHE [None]
  - HYPERSENSITIVITY [None]
  - OEDEMATOUS PANCREATITIS [None]
  - WEIGHT DECREASED [None]
